FAERS Safety Report 9370089 (Version 1)
Quarter: 2013Q2

REPORT INFORMATION
  Report Type: Spontaneous
  Country: US (occurrence: None)
  Receive Date: 20130621
  Receipt Date: 20130621
  Transmission Date: 20140414
  Serious: Yes (Hospitalization)
  Sender: FDA-Public Use
  Company Number: 2013AP006086

PATIENT
  Age: 33 Year
  Sex: Female

DRUGS (2)
  1. ALPRAZOLAM [Suspect]
     Indication: DRUG ABUSE
  2. PREGABALIN [Suspect]
     Indication: DRUG ABUSE

REACTIONS (6)
  - Somnolence [None]
  - Substance use [None]
  - Drug abuse [None]
  - Drug withdrawal syndrome [None]
  - Toxicity to various agents [None]
  - Drug abuse [None]
